FAERS Safety Report 8587125-4 (Version None)
Quarter: 2012Q3

REPORT INFORMATION
  Report Type: 
  Country: None (occurrence: None)
  Receive Date: 20120810
  Receipt Date: 20120718
  Transmission Date: 20120928
  Serious: Yes (Disabling)
  Sender: FDA-Public Use
  Company Number: DE-009507513-1207DEU007983

PATIENT

DRUGS (6)
  1. TENOFOVIR DISOPROXIL FUMARATE [Concomitant]
     Indication: HIV INFECTION
     Dosage: 245 MG, QD
     Route: 048
     Dates: start: 20120209
  2. ISENTRESS [Suspect]
     Indication: HIV INFECTION
     Dosage: 400 MG, BID
     Route: 048
     Dates: start: 20120209, end: 20120315
  3. INTELENCE [Concomitant]
  4. PREZISTA [Concomitant]
  5. EMTRICITABINE [Concomitant]
     Indication: HIV INFECTION
     Dosage: 200 MG, QD
     Route: 048
     Dates: start: 20120209, end: 20120323
  6. TRUVADA [Concomitant]
     Indication: HIV INFECTION
     Route: 048

REACTIONS (2)
  - DRUG INEFFECTIVE [None]
  - VIROLOGIC FAILURE [None]
